FAERS Safety Report 10006237 (Version 1)
Quarter: 2014Q1

REPORT INFORMATION
  Report Type: Report from Study
  Country: US (occurrence: US)
  Receive Date: 20140313
  Receipt Date: 20140313
  Transmission Date: 20141002
  Serious: Yes (Life-Threatening, Hospitalization)
  Sender: FDA-Public Use
  Company Number: US-SA-2014SA032024

PATIENT
  Age: 74 Year
  Sex: Female

DRUGS (10)
  1. DRONEDARONE [Suspect]
     Indication: PRODUCT USED FOR UNKNOWN INDICATION
     Route: 065
  2. DABIGATRAN [Interacting]
     Indication: PRODUCT USED FOR UNKNOWN INDICATION
     Route: 065
  3. BENAZEPRIL HYDROCHLORIDE [Concomitant]
  4. AMLODIPINE [Concomitant]
  5. FOLIC ACID [Concomitant]
  6. SYNTHROID [Concomitant]
  7. CARVEDILOL [Concomitant]
  8. SIMVASTATIN [Concomitant]
  9. DEXILANT [Concomitant]
  10. VITAMIN D [Concomitant]

REACTIONS (4)
  - Gastrointestinal haemorrhage [Unknown]
  - Drug interaction [Unknown]
  - Small intestinal haemorrhage [Unknown]
  - Gastric haemorrhage [Unknown]
